FAERS Safety Report 24308910 (Version 1)
Quarter: 2024Q3

REPORT INFORMATION
  Report Type: Spontaneous
  Country: NO (occurrence: None)
  Receive Date: 20240911
  Receipt Date: 20240911
  Transmission Date: 20241017
  Serious: Yes (Other)
  Sender: ASTRAZENECA
  Company Number: 2024A205259

PATIENT
  Age: 30 Year
  Sex: Male

DRUGS (12)
  1. QUETIAPINE [Suspect]
     Active Substance: QUETIAPINE
     Indication: Insomnia
     Dosage: 50-100 MG FOR LAST THREE DAY
     Route: 048
  2. CLONAZEPAM [Suspect]
     Active Substance: CLONAZEPAM
  3. ALPRAZOLAM [Suspect]
     Active Substance: ALPRAZOLAM
  4. AMPHETAMINE [Suspect]
     Active Substance: AMPHETAMINE
  5. ALCOHOL [Suspect]
     Active Substance: ALCOHOL
  6. ETIZOLAM [Suspect]
     Active Substance: ETIZOLAM
  7. DIMETHYLTRYPTAMINE [Suspect]
     Active Substance: DIMETHYLTRYPTAMINE
  8. COCAINE [Suspect]
     Active Substance: COCAINE
  9. KETAMINE [Suspect]
     Active Substance: KETAMINE
  10. NICOTINE [Suspect]
     Active Substance: NICOTINE
  11. LAMOTRIGINE [Concomitant]
     Active Substance: LAMOTRIGINE
     Indication: Epilepsy
  12. LEVETIRACETAM [Concomitant]
     Active Substance: LEVETIRACETAM
     Indication: Epilepsy

REACTIONS (2)
  - Toxicity to various agents [Unknown]
  - Off label use [Unknown]
